FAERS Safety Report 25304620 (Version 1)
Quarter: 2025Q2

REPORT INFORMATION
  Report Type: Spontaneous
  Country: US (occurrence: US)
  Receive Date: 20250513
  Receipt Date: 20250513
  Transmission Date: 20250716
  Serious: No
  Sender: MISSION PHARMACAL COMPANY
  Company Number: US-Mission Pharmacal Company-2176642

PATIENT
  Age: 34 Year
  Sex: Female

DRUGS (9)
  1. THIOLA EC [Suspect]
     Active Substance: TIOPRONIN
     Indication: Cystinuria
     Dates: start: 20191001
  2. PROMETHAZINE [Concomitant]
     Active Substance: PROMETHAZINE HYDROCHLORIDE
  3. THIOLA [Suspect]
     Active Substance: TIOPRONIN
     Dates: start: 20140801, end: 20190930
  4. AIMOVIG [Concomitant]
     Active Substance: ERENUMAB-AOOE
  5. SUMATRIPTAN [Concomitant]
     Active Substance: SUMATRIPTAN
  6. DAYVIGO [Concomitant]
     Active Substance: LEMBOREXANT
  7. ALPRAZOLAM [Concomitant]
     Active Substance: ALPRAZOLAM
  8. QUETIAPINE [Concomitant]
     Active Substance: QUETIAPINE
  9. VITAMIN D [Concomitant]
     Active Substance: VITAMIN D NOS

REACTIONS (6)
  - Gastrointestinal disorder [Unknown]
  - Drug ineffective [Unknown]
  - Abdominal discomfort [Unknown]
  - Gastritis [Unknown]
  - Vomiting [Unknown]
  - Abdominal pain upper [Unknown]
